FAERS Safety Report 19175428 (Version 1)
Quarter: 2021Q2

REPORT INFORMATION
  Report Type: Spontaneous
  Country: FR (occurrence: FR)
  Receive Date: 20210424
  Receipt Date: 20210424
  Transmission Date: 20210717
  Serious: Yes (Life-Threatening)
  Sender: FDA-Public Use
  Company Number: FR-ROCHE-2814680

PATIENT
  Age: 42 Year
  Sex: Male

DRUGS (9)
  1. INDAPAMIDE. [Suspect]
     Active Substance: INDAPAMIDE
     Indication: PRODUCT USED FOR UNKNOWN INDICATION
     Route: 048
     Dates: start: 20200101
  2. HALDOL [Suspect]
     Active Substance: HALOPERIDOL
     Indication: CHILDHOOD PSYCHOSIS
     Dosage: 5MG ? 10MG ? 5MG
     Route: 048
     Dates: start: 20200319
  3. BACTRIM [Suspect]
     Active Substance: SULFAMETHOXAZOLE\TRIMETHOPRIM
     Indication: EAR INFECTION
     Dosage: 1 ? 0 ? 1
     Route: 048
     Dates: start: 20210219, end: 20210301
  4. NALTREXONE [Suspect]
     Active Substance: NALTREXONE
     Indication: PRODUCT USED FOR UNKNOWN INDICATION
     Route: 048
     Dates: start: 20200323
  5. TOVIAZ [Suspect]
     Active Substance: FESOTERODINE FUMARATE
     Indication: PRODUCT USED FOR UNKNOWN INDICATION
     Route: 048
     Dates: start: 20191231
  6. CYAMEMAZINE [Suspect]
     Active Substance: CYAMEMAZINE
     Indication: CHILDHOOD PSYCHOSIS
     Dosage: 25MG 1?1?1?0?100MG 0?0?0?1
     Route: 048
     Dates: start: 20210129, end: 20210301
  7. PERINDOPRIL [Suspect]
     Active Substance: PERINDOPRIL
     Indication: PRODUCT USED FOR UNKNOWN INDICATION
     Route: 048
     Dates: start: 20200101
  8. DIAZEPAM. [Suspect]
     Active Substance: DIAZEPAM
     Indication: MIXED ANXIETY AND DEPRESSIVE DISORDER
     Dosage: 10MG ? 5MG ? 10MG
     Route: 048
     Dates: start: 20201027
  9. TERALITHE [Suspect]
     Active Substance: LITHIUM CARBONATE
     Indication: CHILDHOOD PSYCHOSIS
     Route: 048
     Dates: start: 20200309, end: 20210312

REACTIONS (1)
  - Subileus [Recovered/Resolved]

NARRATIVE: CASE EVENT DATE: 20210222
